FAERS Safety Report 9931767 (Version 1)
Quarter: 2014Q1

REPORT INFORMATION
  Report Type: Spontaneous
  Country: US (occurrence: None)
  Receive Date: 20140226
  Receipt Date: 20140226
  Transmission Date: 20141002
  Serious: Yes (Hospitalization, Other)
  Sender: FDA-Public Use
  Company Number: AUR-APL-2014-02137

PATIENT
  Sex: Female

DRUGS (3)
  1. LISINOPRIL [Suspect]
     Indication: BLOOD PRESSURE
  2. HYDROCHLOROTHIAZIDE [Suspect]
     Indication: BLOOD PRESSURE
  3. DIOVAN [Suspect]
     Indication: BLOOD PRESSURE

REACTIONS (2)
  - Dehydration [None]
  - Renal impairment [None]
